FAERS Safety Report 24271623 (Version 1)
Quarter: 2024Q3

REPORT INFORMATION
  Report Type: Spontaneous
  Country: EG (occurrence: EG)
  Receive Date: 20240902
  Receipt Date: 20240902
  Transmission Date: 20241017
  Serious: Yes (Death, Hospitalization, Other)
  Sender: AMGEN
  Company Number: EG-SERVIER-S24010754

PATIENT
  Age: 62 Year
  Sex: Male

DRUGS (27)
  1. IVABRADINE [Suspect]
     Active Substance: IVABRADINE
     Indication: Sinus tachycardia
     Dosage: 5 MG, BID
     Route: 048
  2. VORICONAZOLE [Suspect]
     Active Substance: VORICONAZOLE
     Indication: Evidence based treatment
     Dosage: 200 MG, BID
     Route: 040
  3. MEROPENEM [Concomitant]
     Active Substance: MEROPENEM
     Indication: Sepsis
     Dosage: 1 G, TID
     Route: 040
  4. ALBUTEROL [Concomitant]
     Active Substance: ALBUTEROL
     Indication: Mediastinal disorder
     Dosage: 500 MCG
     Route: 055
  5. BUDESONIDE [Concomitant]
     Active Substance: BUDESONIDE
     Indication: Mediastinal disorder
     Dosage: 0.5 MCG, BID
     Route: 055
  6. ENOXAPARIN [Concomitant]
     Active Substance: ENOXAPARIN
     Indication: Deep vein thrombosis
     Dosage: 60 MG, BID
     Route: 058
  7. ASPIRIN [Concomitant]
     Active Substance: ASPIRIN
     Indication: Myocardial ischaemia
     Dosage: 75 MG, QD
     Route: 048
  8. CLOPIDOGREL [Concomitant]
     Active Substance: CLOPIDOGREL BISULFATE
     Indication: Myocardial ischaemia
     Dosage: 75 MG, QD
     Route: 048
  9. ACETAMINOPHEN [Concomitant]
     Active Substance: ACETAMINOPHEN
     Indication: Product used for unknown indication
     Dosage: 1 G, TID
     Route: 040
  10. LEVOFLOXACIN [Concomitant]
     Active Substance: LEVOFLOXACIN
     Indication: Sepsis
     Dosage: 500 MG, QD
     Route: 040
  11. LINEZOLID [Concomitant]
     Active Substance: LINEZOLID
     Indication: Sepsis
     Dosage: 600 MG, BID
     Route: 040
  12. TIGECYCLINE [Concomitant]
     Active Substance: TIGECYCLINE
     Indication: Sepsis
     Dosage: 50 MG, BID
     Route: 040
  13. COLISTIN [Concomitant]
     Active Substance: COLISTIN
     Indication: Fungal test positive
     Dosage: LD: 9 M UNIT MD: 9 M UNIT IN DIVIDED DOSES TWICE DAILY
     Route: 040
  14. DEXAMETHASONE [Concomitant]
     Active Substance: DEXAMETHASONE
     Indication: Mediastinal disorder
     Dosage: 6 MG, BID
     Route: 040
  15. HYDROCORTISONE [Concomitant]
     Active Substance: HYDROCORTISONE\HYDROCORTISONE ACETATE
     Indication: Sepsis
     Dosage: 6 MG, QID
     Route: 040
  16. TORSEMIDE [Concomitant]
     Active Substance: TORSEMIDE
     Indication: Mediastinal disorder
     Dosage: 10 MG, QD
     Route: 048
  17. PANTOPRAZOLE [Concomitant]
     Active Substance: PANTOPRAZOLE
     Indication: Product used for unknown indication
     Dosage: 40 MG, QD
     Route: 040
  18. VALSARTAN [Concomitant]
     Active Substance: VALSARTAN
     Indication: Blood pressure abnormal
     Dosage: 80 MG, BID
     Route: 048
  19. BISOPROLOL [Concomitant]
     Active Substance: BISOPROLOL\BISOPROLOL FUMARATE
     Indication: Blood pressure abnormal
     Dosage: 5 MG, QD
     Route: 048
  20. MIDAZOLAM [Concomitant]
     Active Substance: MIDAZOLAM
     Indication: Blood pressure decreased
     Dosage: 15 MG IN 50 ML RATE 10 ML/H
     Route: 040
  21. MIDAZOLAM [Concomitant]
     Active Substance: MIDAZOLAM
     Indication: Oxygen saturation decreased
  22. FENTANYL [Concomitant]
     Active Substance: FENTANYL\FENTANYL CITRATE
     Indication: Blood pressure decreased
     Dosage: 0.1 MG RATE 5 ML/H
     Route: 040
  23. FENTANYL [Concomitant]
     Active Substance: FENTANYL\FENTANYL CITRATE
     Indication: Oxygen saturation decreased
  24. ALBUMIN HUMAN [Concomitant]
     Active Substance: ALBUMIN HUMAN
     Indication: Hypoalbuminaemia
     Dosage: 50 ML, QD
     Route: 040
  25. ALBUMIN HUMAN [Concomitant]
     Active Substance: ALBUMIN HUMAN
     Dosage: 50 ML, TID
     Route: 040
  26. NOREPINEPHRINE [Concomitant]
     Active Substance: NOREPINEPHRINE\NOREPINEPHRINE BITARTRATE
     Indication: Blood pressure decreased
     Dosage: 4 MG RATE 10 ML/ H
     Route: 040
  27. NOREPINEPHRINE [Concomitant]
     Active Substance: NOREPINEPHRINE\NOREPINEPHRINE BITARTRATE
     Indication: Oxygen saturation decreased
     Dosage: 4 MG RATE 5 ML/ H
     Route: 040

REACTIONS (3)
  - Septic shock [Fatal]
  - Heart rate decreased [Fatal]
  - Contraindicated product administered [Fatal]
